FAERS Safety Report 6387314-3 (Version None)
Quarter: 2009Q4

REPORT INFORMATION
  Report Type: 
  Country: None (occurrence: None)
  Receive Date: 20091002
  Receipt Date: 20090930
  Transmission Date: 20100525
  Serious: Yes (Life-Threatening, Hospitalization)
  Sender: FDA-Public Use
  Company Number: US-GENENTECH-290031

PATIENT
  Sex: Female

DRUGS (2)
  1. BLINDED PLACEBO [Suspect]
     Indication: MACULAR OEDEMA
     Dosage: UNK, 1/MONTH
     Route: 031
     Dates: start: 20080805
  2. BLINDED RANIBIZUMAB [Suspect]
     Indication: MACULAR OEDEMA
     Dosage: UNK, 1/MONTH
     Route: 031
     Dates: start: 20080805

REACTIONS (1)
  - CEREBROVASCULAR ACCIDENT [None]
